FAERS Safety Report 7306923-8 (Version None)
Quarter: 2011Q1

REPORT INFORMATION
  Report Type: 
  Country: None (occurrence: None)
  Receive Date: 20110223
  Receipt Date: 20110214
  Transmission Date: 20110831
  Serious: No
  Sender: FDA-Public Use
  Company Number: US-BIOGENIDEC-2010BI040360

PATIENT
  Age: 68 Year
  Sex: Female

DRUGS (2)
  1. CARBAMAZEPINE [Concomitant]
     Indication: TRIGEMINAL NEURALGIA
  2. TYSABRI [Suspect]
     Indication: MULTIPLE SCLEROSIS
     Route: 042
     Dates: start: 20100923

REACTIONS (4)
  - FATIGUE [None]
  - DRUG INEFFECTIVE [None]
  - BRADYPHRENIA [None]
  - BLOOD PRESSURE INCREASED [None]
